FAERS Safety Report 8576123-2 (Version None)
Quarter: 2012Q3

REPORT INFORMATION
  Report Type: 
  Country: None (occurrence: None)
  Receive Date: 20120807
  Receipt Date: 20120801
  Transmission Date: 20120928
  Serious: Yes (Hospitalization, Other)
  Sender: FDA-Public Use
  Company Number: US-ABBOTT-12P-163-0963493-00

PATIENT
  Sex: Male

DRUGS (3)
  1. HUMIRA [Suspect]
     Dosage: DAY 8
  2. HUMIRA [Suspect]
  3. HUMIRA [Suspect]
     Indication: PSORIATIC ARTHROPATHY
     Dosage: TWO PENS, DAY 1
     Route: 058
     Dates: start: 20120711, end: 20120711

REACTIONS (2)
  - ABASIA [None]
  - DIZZINESS [None]
